FAERS Safety Report 15491102 (Version 2)
Quarter: 2018Q4

REPORT INFORMATION
  Report Type: Spontaneous
  Country: FR (occurrence: FR)
  Receive Date: 20181012
  Receipt Date: 20181023
  Transmission Date: 20190205
  Serious: Yes (Death, Other)
  Sender: FDA-Public Use
  Company Number: FR-BRISTOL-MYERS SQUIBB COMPANY-BMS-2018-091540

PATIENT
  Age: 91 Year
  Sex: Male

DRUGS (3)
  1. AUGMENTIN [Interacting]
     Active Substance: AMOXICILLIN\CLAVULANATE POTASSIUM
     Indication: PNEUMONIA ASPIRATION
     Dosage: 3 TAB, QD
     Route: 048
     Dates: start: 20180105, end: 20180113
  2. LOVENOX [Interacting]
     Active Substance: ENOXAPARIN SODIUM
     Indication: ATRIAL FIBRILLATION
     Dosage: 10000 IU, QD
     Route: 058
     Dates: start: 20180105, end: 20180114
  3. COUMADINE [Suspect]
     Active Substance: WARFARIN SODIUM
     Indication: ATRIAL FIBRILLATION
     Dosage: 2 MG, QD
     Route: 048
     Dates: start: 20180105, end: 20180114

REACTIONS (3)
  - Melaena [Fatal]
  - Drug interaction [Unknown]
  - Haemorrhagic anaemia [Fatal]

NARRATIVE: CASE EVENT DATE: 20180111
